FAERS Safety Report 7922549-7 (Version None)
Quarter: 2011Q4

REPORT INFORMATION
  Report Type: 
  Country: None (occurrence: None)
  Receive Date: 20111117
  Receipt Date: 20111014
  Transmission Date: 20120403
  Serious: No
  Sender: FDA-Public Use
  Company Number: US-ALLERGAN-1009814US

PATIENT
  Age: 58 Year
  Sex: Female
  Weight: 82.993 kg

DRUGS (13)
  1. COMBIGAN [Suspect]
     Indication: INTRAOCULAR PRESSURE TEST
     Dosage: UNK
     Dates: start: 20090101
  2. ZETIA [Concomitant]
     Indication: HYPERCHOLESTEROLAEMIA
     Dosage: 10 MG, QD
  3. LOVAZA [Concomitant]
     Indication: SUPPLEMENTATION THERAPY
     Dosage: 1000 MG, BID
  4. ASPIRIN [Concomitant]
     Indication: CARDIAC DISORDER
  5. OSCAL D [Concomitant]
     Indication: PRODUCT USED FOR UNKNOWN INDICATION
     Dosage: 500 UNK, UNK
  6. MULTI-VITAMIN [Concomitant]
  7. METAMUCIL-2 [Concomitant]
  8. BENADRYL [Concomitant]
  9. COZAAR [Concomitant]
  10. CLARITIN [Concomitant]
  11. XALATAN [Suspect]
     Indication: INTRAOCULAR PRESSURE TEST
     Dosage: UNK
     Dates: start: 20040901
  12. TRICOR [Concomitant]
     Indication: HYPERCHOLESTEROLAEMIA
     Dosage: 145 MG, QD
  13. MACRODANTIN [Concomitant]
     Indication: URINARY TRACT INFECTION

REACTIONS (3)
  - BLEPHARITIS [None]
  - EYELID DISORDER [None]
  - CONJUNCTIVITIS ALLERGIC [None]
